FAERS Safety Report 25656355 (Version 2)
Quarter: 2025Q3

REPORT INFORMATION
  Report Type: Spontaneous
  Country: EU (occurrence: EU)
  Receive Date: 20250807
  Receipt Date: 20250915
  Transmission Date: 20251021
  Serious: Yes (Other)
  Sender: PFIZER
  Company Number: EU-ROCHE-10000351240

PATIENT
  Sex: Female

DRUGS (7)
  1. RITUXIMAB [Suspect]
     Active Substance: RITUXIMAB
     Indication: Waldenstrom^s macroglobulinaemia
  2. GLOFITAMAB [Suspect]
     Active Substance: GLOFITAMAB
     Indication: Diffuse large B-cell lymphoma
     Dates: start: 20250217
  3. GLOFITAMAB [Suspect]
     Active Substance: GLOFITAMAB
     Dates: start: 20250303
  4. BENDAMUSTINE [Suspect]
     Active Substance: BENDAMUSTINE
     Indication: Waldenstrom^s macroglobulinaemia
  5. MESALAMINE [Concomitant]
     Active Substance: MESALAMINE
  6. CARBAMAZEPINE [Concomitant]
     Active Substance: CARBAMAZEPINE
  7. GAZYVA [Concomitant]
     Active Substance: OBINUTUZUMAB
     Dates: start: 20250210

REACTIONS (7)
  - Malignant neoplasm progression [Unknown]
  - Waldenstrom^s macroglobulinaemia [Unknown]
  - Cytokine release syndrome [Unknown]
  - Abdominal pain lower [Unknown]
  - Back pain [Unknown]
  - Abdominal pain upper [Unknown]
  - Off label use [Unknown]
